FAERS Safety Report 4322242-6 (Version None)
Quarter: 2004Q1

REPORT INFORMATION
  Report Type: 
  Country: None (occurrence: None)
  Receive Date: 20040323
  Receipt Date: 20031203
  Transmission Date: 20041129
  Serious: Yes (Life-Threatening, Hospitalization)
  Sender: FDA-Public Use
  Company Number: WAES 0312GBR00049

PATIENT
  Age: 59 Year
  Sex: Female

DRUGS (7)
  1. ASPIRIN [Concomitant]
     Indication: ANTIPLATELET THERAPY
     Route: 048
  2. ATENOLOL [Concomitant]
     Indication: HYPERTENSION
     Route: 048
  3. DEMECLOCYCLINE [Suspect]
     Indication: HYPONATRAEMIA
     Route: 048
     Dates: start: 20031024, end: 20031115
  4. PHENYTOIN [Concomitant]
     Indication: EPILEPSY
     Route: 048
     Dates: start: 20000101, end: 20031101
  5. ZOCOR [Suspect]
     Indication: HYPERLIPIDAEMIA
     Route: 048
     Dates: start: 20031013, end: 20031115
  6. VALPROATE SODIUM [Concomitant]
     Route: 048
  7. VALPROATE SODIUM [Concomitant]
     Route: 048
     Dates: start: 20030101

REACTIONS (2)
  - HYPOTENSION [None]
  - STEVENS-JOHNSON SYNDROME [None]
